FAERS Safety Report 5398939-6 (Version None)
Quarter: 2007Q3

REPORT INFORMATION
  Report Type: 
  Country: None (occurrence: None)
  Receive Date: 20070724
  Receipt Date: 20070724
  Transmission Date: 20080115
  Serious: Yes (Hospitalization)
  Sender: FDA-Public Use
  Company Number: None

PATIENT
  Age: 43 Year
  Sex: Male

DRUGS (11)
  1. ZANTAC [Suspect]
     Dosage: 150MG BID PO
     Route: 048
     Dates: start: 20060306, end: 20060308
  2. MULTI-VITAMIN [Concomitant]
  3. ZOFRAN [Concomitant]
  4. PROMETHAZINE [Concomitant]
  5. INSULIN [Concomitant]
  6. TYLENOL (CAPLET) [Concomitant]
  7. RISPERIDONE [Concomitant]
  8. OXYCODONE HCL [Concomitant]
  9. COLACE [Concomitant]
  10. HEPARIN [Concomitant]
  11. MORPHINE [Concomitant]

REACTIONS (1)
  - LIVER FUNCTION TEST ABNORMAL [None]
